FAERS Safety Report 4974231-6 (Version None)
Quarter: 2006Q2

REPORT INFORMATION
  Report Type: 
  Country: None (occurrence: None)
  Receive Date: 20060417
  Receipt Date: 20060403
  Transmission Date: 20061013
  Serious: Yes (Hospitalization)
  Sender: FDA-Public Use
  Company Number: US-MERCK-0604USA00880

PATIENT
  Age: 53 Year
  Sex: Male
  Weight: 109 kg

DRUGS (6)
  1. VIOXX [Suspect]
     Indication: ARTHRALGIA
     Route: 048
     Dates: start: 20000803, end: 20031201
  2. LIPITOR [Concomitant]
     Indication: HYPERLIPIDAEMIA
     Route: 065
  3. ULTRAM [Concomitant]
     Route: 065
  4. PROZAC [Concomitant]
     Indication: DEPRESSION
     Route: 048
  5. ALLEGRA [Concomitant]
     Route: 065
  6. HYDROCHLOROTHIAZIDE [Concomitant]
     Route: 065

REACTIONS (10)
  - ACUTE MYOCARDIAL INFARCTION [None]
  - BACK PAIN [None]
  - CHEST PAIN [None]
  - DYSPNOEA [None]
  - GASTROINTESTINAL DISORDER [None]
  - HEADACHE [None]
  - HYPERHIDROSIS [None]
  - INTERVERTEBRAL DISC DISORDER [None]
  - OEDEMA [None]
  - POLYP [None]
